FAERS Safety Report 12372976 (Version 1)
Quarter: 2016Q2

REPORT INFORMATION
  Report Type: Report from Study
  Country: US (occurrence: US)
  Receive Date: 20160516
  Receipt Date: 20160516
  Transmission Date: 20160815
  Serious: No
  Sender: FDA-Public Use
  Company Number: ADR-2015-00910

PATIENT
  Age: 52 Year
  Sex: Female

DRUGS (8)
  1. COMPOUNDED BACLOFEN [Suspect]
     Active Substance: BACLOFEN
     Dosage: 450.1 MCG/DAY
     Route: 037
     Dates: start: 20150318
  2. COMPOUNDED BACLOFEN [Suspect]
     Active Substance: BACLOFEN
     Dosage: 471 MCG/DAY
     Route: 037
     Dates: start: 20141215
  3. PRIALT [Suspect]
     Active Substance: ZICONOTIDE ACETATE
     Dosage: 1.5702 MCG/DAY
     Route: 037
     Dates: start: 20141215
  4. CLONIDINE. [Suspect]
     Active Substance: CLONIDINE
     Dosage: 157.02 MCG/DAY
     Route: 037
     Dates: start: 20141215
  5. CLONIDINE. [Suspect]
     Active Substance: CLONIDINE
     Dosage: 150.04 MCG/DAY
     Route: 037
     Dates: start: 20150318
  6. BUPIVACAINE. [Suspect]
     Active Substance: BUPIVACAINE
     Dosage: 5.401 MG/DAY
     Route: 037
     Dates: start: 20150318
  7. PRIALT [Suspect]
     Active Substance: ZICONOTIDE ACETATE
     Dosage: 1.5004MCG/DAY
     Route: 037
     Dates: start: 20150318
  8. BUPIVACAINE. [Suspect]
     Active Substance: BUPIVACAINE
     Dosage: 5.653 MG/DAY
     Route: 037
     Dates: start: 20141215

REACTIONS (2)
  - Adverse drug reaction [Recovered/Resolved]
  - Sedation [Recovered/Resolved]

NARRATIVE: CASE EVENT DATE: 20150318
